FAERS Safety Report 19208883 (Version 1)
Quarter: 2021Q2

REPORT INFORMATION
  Report Type: Spontaneous
  Country: CZ (occurrence: CZ)
  Receive Date: 20210503
  Receipt Date: 20210503
  Transmission Date: 20210717
  Serious: Yes (Life-Threatening, Hospitalization, Other)
  Sender: FDA-Public Use
  Company Number: CZ-BAUSCH-BL-2021-013972

PATIENT
  Age: 30 Year
  Sex: Female
  Weight: 72 kg

DRUGS (16)
  1. NOVALGIN (METAMIZOLE SODIUM) [Suspect]
     Active Substance: METAMIZOLE SODIUM
     Route: 065
     Dates: start: 20160621, end: 20160621
  2. PARALEN (ACETAMINOPHEN) [Suspect]
     Active Substance: ACETAMINOPHEN
     Indication: GENERAL ANAESTHESIA
     Route: 054
     Dates: start: 20160621, end: 20160621
  3. PARALEN (ACETAMINOPHEN) [Suspect]
     Active Substance: ACETAMINOPHEN
     Route: 054
     Dates: start: 20160621, end: 20160621
  4. PARALEN (ACETAMINOPHEN) [Suspect]
     Active Substance: ACETAMINOPHEN
     Route: 054
     Dates: start: 20160621, end: 20160621
  5. CHLORID SODNY [Suspect]
     Active Substance: SODIUM CHLORIDE
     Indication: GENERAL ANAESTHESIA
     Dosage: 0.9 % BRAUN
     Route: 065
     Dates: start: 20160621, end: 20160621
  6. MIDAZOLAM TORREX [Suspect]
     Active Substance: MIDAZOLAM HYDROCHLORIDE
     Indication: GENERAL ANAESTHESIA
     Dosage: DOSAGE FORM: UNSPECIFIED
     Route: 065
     Dates: start: 20160621, end: 20160621
  7. PROPOFOL. [Suspect]
     Active Substance: PROPOFOL
     Indication: GENERAL ANAESTHESIA
     Route: 042
     Dates: start: 20160621, end: 20160621
  8. NOVALGIN (METAMIZOLE SODIUM) [Suspect]
     Active Substance: METAMIZOLE SODIUM
     Route: 065
     Dates: start: 20160621, end: 20160621
  9. ATROPIN BIOTIKA [Suspect]
     Active Substance: ATROPINE
     Indication: GENERAL ANAESTHESIA
     Dosage: 1 ML,UNK
     Route: 065
     Dates: start: 20160621, end: 20160621
  10. RAPIFEN (ALFENTANIL HYDROCHLORIDE) [Suspect]
     Active Substance: ALFENTANIL HYDROCHLORIDE
     Indication: GENERAL ANAESTHESIA
     Route: 042
     Dates: start: 20160621, end: 20160621
  11. IBUPROFEN. [Suspect]
     Active Substance: IBUPROFEN
     Indication: GENERAL ANAESTHESIA
     Route: 042
     Dates: start: 20160621, end: 20160621
  12. DIAZEPAM. [Suspect]
     Active Substance: DIAZEPAM
     Indication: GENERAL ANAESTHESIA
     Route: 065
     Dates: start: 20160621, end: 20160621
  13. NATRII CHLORIDUM [Suspect]
     Active Substance: SODIUM CHLORIDE
     Dosage: 0.9 % BRAUN
     Route: 065
     Dates: start: 20160621, end: 20160621
  14. NOVALGIN (METAMIZOLE SODIUM) [Suspect]
     Active Substance: METAMIZOLE SODIUM
     Indication: GENERAL ANAESTHESIA
     Route: 065
     Dates: start: 20160621, end: 20160621
  15. NATRII CHLORIDUM [Suspect]
     Active Substance: SODIUM CHLORIDE
     Indication: GENERAL ANAESTHESIA
     Dosage: DOSAGE FORM: UNSPECIFIED
     Route: 065
     Dates: start: 20160621, end: 20160621
  16. ATROPINI SULFAS [Suspect]
     Active Substance: ATROPINE SULFATE
     Indication: GENERAL ANAESTHESIA
     Dosage: DOSAGE FORM: UNSPECIFIED
     Route: 065
     Dates: start: 20160621, end: 20160621

REACTIONS (9)
  - Product quality issue [Unknown]
  - Pleural effusion [Recovered/Resolved]
  - Dyspnoea [Recovered/Resolved]
  - Disseminated intravascular coagulation [Recovered/Resolved]
  - Dizziness [Recovered/Resolved]
  - Expired product administered [Unknown]
  - Haemoperitoneum [Recovered/Resolved]
  - Vomiting [Recovered/Resolved]
  - Abdominal pain [Recovered/Resolved]

NARRATIVE: CASE EVENT DATE: 201606
